FAERS Safety Report 25573492 (Version 3)
Quarter: 2025Q3

REPORT INFORMATION
  Report Type: Spontaneous
  Country: US (occurrence: US)
  Receive Date: 20250717
  Receipt Date: 20250731
  Transmission Date: 20251021
  Serious: Yes (Death, Hospitalization, Other)
  Sender: JAZZ
  Company Number: US-JAZZ PHARMACEUTICALS-2025-US-017019

PATIENT
  Age: 50 Year
  Sex: Male
  Weight: 59 kg

DRUGS (1)
  1. ZIIHERA [Suspect]
     Active Substance: ZANIDATAMAB-HRII
     Indication: HER2 positive biliary tract cancer
     Dosage: 1.050 MILLIGRAM, Q2W (3 DOSES)
     Dates: start: 20250605, end: 20250701

REACTIONS (3)
  - Sepsis [Fatal]
  - Respiratory failure [Unknown]
  - Diarrhoea [Unknown]

NARRATIVE: CASE EVENT DATE: 20250711
